FAERS Safety Report 15118797 (Version 1)
Quarter: 2018Q3

REPORT INFORMATION
  Report Type: Spontaneous
  Country: BE (occurrence: BE)
  Receive Date: 20180709
  Receipt Date: 20180709
  Transmission Date: 20181010
  Serious: Yes (Death, Hospitalization, Disabling)
  Sender: FDA-Public Use
  Company Number: BE-ROCHE-2147834

PATIENT
  Age: 72 Year
  Sex: Female
  Weight: 61 kg

DRUGS (13)
  1. LAXOBERON [Concomitant]
     Active Substance: SODIUM PICOSULFATE
     Indication: CONSTIPATION
     Route: 065
     Dates: start: 20170831
  2. PANTOMED (BELGIUM) [Concomitant]
     Route: 065
     Dates: start: 20130802
  3. HERCEPTIN [Suspect]
     Active Substance: TRASTUZUMAB
     Route: 042
     Dates: start: 201708, end: 20180525
  4. FENTANYL. [Concomitant]
     Active Substance: FENTANYL
     Indication: OSTEONECROSIS
     Route: 065
     Dates: start: 20170915
  5. HERCEPTIN [Suspect]
     Active Substance: TRASTUZUMAB
     Indication: BREAST CANCER METASTATIC
     Route: 042
     Dates: start: 20170713, end: 20170713
  6. AMOXICILLIN. [Concomitant]
     Active Substance: AMOXICILLIN
     Indication: LUNG INFECTION
     Route: 065
     Dates: start: 20180609
  7. OXYCODONE [Concomitant]
     Active Substance: OXYCODONE
     Indication: OSTEONECROSIS
     Route: 065
     Dates: start: 20170301
  8. DOXYCYCLINE. [Concomitant]
     Active Substance: DOXYCYCLINE
     Indication: OSTEONECROSIS
     Route: 065
     Dates: start: 20160729
  9. IMODIUM [Concomitant]
     Active Substance: LOPERAMIDE HYDROCHLORIDE
     Indication: DIARRHOEA
     Route: 065
     Dates: start: 20170804
  10. ALGOSTASE MONO [Concomitant]
     Indication: OSTEONECROSIS
     Route: 065
     Dates: start: 20170614
  11. PRIMPERAN [Concomitant]
     Active Substance: METOCLOPRAMIDE HYDROCHLORIDE
     Indication: NAUSEA
     Route: 065
     Dates: start: 20170804
  12. ABEMACICLIB [Suspect]
     Active Substance: ABEMACICLIB
     Indication: BREAST CANCER METASTATIC
     Route: 048
     Dates: start: 20170713, end: 20180608
  13. ALIZAPRIDE [Concomitant]
     Active Substance: ALIZAPRIDE
     Indication: NAUSEA
     Route: 065
     Dates: start: 20170804

REACTIONS (6)
  - Death [Fatal]
  - Lung infection [Fatal]
  - Pyrexia [Not Recovered/Not Resolved]
  - Pulmonary function test decreased [Not Recovered/Not Resolved]
  - Dyspnoea [Not Recovered/Not Resolved]
  - Pulmonary fibrosis [Fatal]

NARRATIVE: CASE EVENT DATE: 20180609
